FAERS Safety Report 13882832 (Version 1)
Quarter: 2017Q3

REPORT INFORMATION
  Report Type: Spontaneous
  Country: FR (occurrence: FR)
  Receive Date: 20170818
  Receipt Date: 20170818
  Transmission Date: 20171127
  Serious: Yes (Hospitalization)
  Sender: FDA-Public Use
  Company Number: FR-ELI_LILLY_AND_COMPANY-FR201708006347

PATIENT
  Age: 46 Year
  Sex: Male

DRUGS (3)
  1. ERBITUX [Suspect]
     Active Substance: CETUXIMAB
     Indication: PHARYNGEAL CANCER
     Dosage: 455 MG, UNKNOWN
     Route: 042
     Dates: start: 20121212, end: 20130128
  2. FLUOROURACIL. [Suspect]
     Active Substance: FLUOROURACIL
     Indication: PHARYNGEAL CANCER
     Dosage: 4350 MG, UNKNOWN
     Route: 042
     Dates: start: 20121217, end: 20130128
  3. CARBOPLATINE [Suspect]
     Active Substance: CARBOPLATIN
     Indication: PHARYNGEAL CANCER
     Dosage: 125 MG, UNKNOWN
     Route: 042
     Dates: start: 20121217, end: 20130131

REACTIONS (2)
  - Mucosal inflammation [Recovering/Resolving]
  - Anaemia [Recovering/Resolving]

NARRATIVE: CASE EVENT DATE: 20130114
